FAERS Safety Report 17298940 (Version 5)
Quarter: 2021Q1

REPORT INFORMATION
  Report Type: Report from Study
  Country: DE (occurrence: DE)
  Receive Date: 20200121
  Receipt Date: 20210304
  Transmission Date: 20210419
  Serious: Yes (Hospitalization)
  Sender: FDA-Public Use
  Company Number: NVSC2020DE008612

PATIENT
  Age: 44 Year
  Sex: Female
  Weight: 73 kg

DRUGS (10)
  1. UNACID [Concomitant]
     Indication: PRODUCT USED FOR UNKNOWN INDICATION
     Dosage: 3 G 1?0?0 (ONLY ONCE AT THAT DAY)
     Route: 042
     Dates: start: 20191228
  2. METHOTREXATE. [Concomitant]
     Active Substance: METHOTREXATE
     Indication: AXIAL SPONDYLOARTHRITIS
     Dosage: 15 MG, QW
     Route: 065
     Dates: start: 201704, end: 20191222
  3. COMPARATOR SECUKINUMAB [Suspect]
     Active Substance: SECUKINUMAB
     Dosage: 300 MG
     Route: 058
     Dates: start: 20200128
  4. LYRICA [Concomitant]
     Active Substance: PREGABALIN
     Indication: PAIN
     Dosage: 200?0?400
     Route: 065
  5. LYRIC [Concomitant]
     Active Substance: DIPHENIDOL HYDROCHLORIDE
     Indication: PRODUCT USED FOR UNKNOWN INDICATION
     Dosage: 200 MG, 1?0?2
     Route: 065
  6. SALVIATHYMOL [Concomitant]
     Indication: IRRIGATION THERAPY
     Dosage: UNK, PRN
     Route: 065
     Dates: start: 20191223, end: 20200128
  7. METHOTREXATE. [Concomitant]
     Active Substance: METHOTREXATE
     Dosage: 15 MG, QW
     Route: 065
     Dates: start: 20200105
  8. PLACEBO [Suspect]
     Active Substance: UNSPECIFIED INGREDIENT
     Indication: AXIAL SPONDYLOARTHRITIS
     Dosage: UNK
     Route: 058
     Dates: start: 20171010
  9. COMPARATOR SECUKINUMAB [Suspect]
     Active Substance: SECUKINUMAB
     Indication: AXIAL SPONDYLOARTHRITIS
     Dosage: 300 MG
     Route: 058
     Dates: start: 20171010, end: 20191231
  10. LYRICA [Concomitant]
     Active Substance: PREGABALIN
     Dosage: UNK
     Route: 065

REACTIONS (1)
  - Peritonsillar abscess [Recovering/Resolving]

NARRATIVE: CASE EVENT DATE: 20191218
